FAERS Safety Report 15868580 (Version 1)
Quarter: 2019Q1

REPORT INFORMATION
  Report Type: Spontaneous
  Country: TW (occurrence: TW)
  Receive Date: 20190125
  Receipt Date: 20190125
  Transmission Date: 20190417
  Serious: Yes (Death)
  Sender: FDA-Public Use
  Company Number: TW-EISAI MEDICAL RESEARCH-EC-2019-051043

PATIENT
  Age: 80 Year
  Sex: Male

DRUGS (1)
  1. LENVIMA [Suspect]
     Active Substance: LENVATINIB
     Indication: NEOPLASM MALIGNANT
     Dosage: UNKNOWN
     Route: 048
     Dates: start: 2018, end: 2018

REACTIONS (2)
  - Gastrointestinal haemorrhage [Fatal]
  - Fatigue [Fatal]

NARRATIVE: CASE EVENT DATE: 2018
